FAERS Safety Report 9055667 (Version 1)
Quarter: 2013Q1

REPORT INFORMATION
  Report Type: Spontaneous
  Country: ES (occurrence: ES)
  Receive Date: 20130206
  Receipt Date: 20130206
  Transmission Date: 20140127
  Serious: Yes (Death, Hospitalization, Other)
  Sender: FDA-Public Use
  Company Number: ES-ROCHE-1187292

PATIENT
  Age: 54 Year
  Sex: Male
  Weight: 86 kg

DRUGS (8)
  1. PEGASYS [Suspect]
     Indication: CHRONIC HEPATITIS C
     Route: 058
     Dates: start: 20121012, end: 20121214
  2. RIBAVIRIN [Suspect]
     Indication: CHRONIC HEPATITIS C
     Route: 048
     Dates: start: 20121012, end: 20121217
  3. INCIVO [Suspect]
     Indication: CHRONIC HEPATITIS C
     Route: 048
     Dates: start: 20121012, end: 20121217
  4. KARVEA [Concomitant]
     Indication: HYPERTENSION
     Route: 048
     Dates: start: 2010
  5. FERROSANOL DUODENAL [Concomitant]
     Indication: ANAEMIA
     Route: 048
     Dates: start: 20121012, end: 20121217
  6. DILUTOL (SPAIN) [Concomitant]
     Indication: HYPERTENSION
     Route: 048
     Dates: start: 2010
  7. ACFOL [Concomitant]
     Indication: ANAEMIA
     Route: 048
     Dates: start: 20121012, end: 20121217
  8. ESOMEPRAZOLE [Concomitant]
     Route: 048
     Dates: start: 2010

REACTIONS (6)
  - Pneumonia legionella [Fatal]
  - Blindness [Fatal]
  - Cataract [Fatal]
  - Sepsis [Unknown]
  - Multi-organ failure [Unknown]
  - Leukopenia [Unknown]
